FAERS Safety Report 4749257-8 (Version None)
Quarter: 2005Q3

REPORT INFORMATION
  Report Type: 
  Country: None (occurrence: None)
  Receive Date: 20050819
  Receipt Date: 20050809
  Transmission Date: 20060218
  Serious: Yes (Other)
  Sender: FDA-Public Use
  Company Number: NL-ABBOTT-05P-114-0308000-00

PATIENT
  Sex: Female
  Weight: 49 kg

DRUGS (3)
  1. HUMIRA [Suspect]
     Indication: RHEUMATOID ARTHRITIS
     Route: 058
     Dates: start: 20050201, end: 20050501
  2. PREDNISOLONE [Concomitant]
     Indication: RHEUMATOID ARTHRITIS
     Route: 048
     Dates: start: 20040209
  3. CALCIUM CARBONATE [Concomitant]
     Indication: OSTEOPOROSIS PROPHYLAXIS
     Route: 048
     Dates: start: 20050209

REACTIONS (4)
  - HAEMATURIA [None]
  - MALAISE [None]
  - SERUM SICKNESS [None]
  - VASCULITIS [None]
